FAERS Safety Report 8397498-3 (Version None)
Quarter: 2012Q2

REPORT INFORMATION
  Report Type: 
  Country: None (occurrence: None)
  Receive Date: 20120529
  Receipt Date: 20120529
  Transmission Date: 20120825
  Serious: Yes (Other)
  Sender: FDA-Public Use
  Company Number: None

PATIENT
  Age: 20 Year
  Sex: Male
  Weight: 83.9154 kg

DRUGS (1)
  1. PROPECIA [Suspect]
     Indication: ANDROGENETIC ALOPECIA
     Dosage: 1MG DAILY PO
     Route: 048
     Dates: start: 20080401, end: 20100401

REACTIONS (6)
  - DRUG DOSE OMISSION [None]
  - COGNITIVE DISORDER [None]
  - DEPRESSION [None]
  - TESTICULAR DISORDER [None]
  - ORGANIC ERECTILE DYSFUNCTION [None]
  - LOSS OF LIBIDO [None]
